FAERS Safety Report 19678684 (Version 2)
Quarter: 2021Q3

REPORT INFORMATION
  Report Type: Spontaneous
  Country: GB (occurrence: GB)
  Receive Date: 20210810
  Receipt Date: 20210816
  Transmission Date: 20211014
  Serious: Yes (Life-Threatening, Hospitalization, Other)
  Sender: FDA-Public Use
  Company Number: GB-STRIDES ARCOLAB LIMITED-2021SP026191

PATIENT
  Age: 56 Year
  Sex: Female

DRUGS (7)
  1. CICLOSPORIN [Suspect]
     Active Substance: CYCLOSPORINE
     Indication: POLYCHONDRITIS
     Dosage: UNK, CYCLICAL
     Route: 042
  2. PREDNISOLONE. [Suspect]
     Active Substance: PREDNISOLONE
     Indication: POLYCHONDRITIS
     Dosage: 60 MILLIGRAM PER DAY
     Route: 065
  3. CYCLOPHOSPHAMIDE. [Suspect]
     Active Substance: CYCLOPHOSPHAMIDE
     Indication: POLYCHONDRITIS
     Dosage: UNK UNK, CYCLICAL 6 CYCLES
     Route: 042
  4. AZACITIDINE. [Suspect]
     Active Substance: AZACITIDINE
     Indication: POLYCHONDRITIS
     Dosage: UNK
     Route: 065
  5. AZATHIOPRINE. [Suspect]
     Active Substance: AZATHIOPRINE
     Indication: POLYCHONDRITIS
     Dosage: UNK
     Route: 065
  6. CYCLOPHOSPHAMIDE. [Suspect]
     Active Substance: CYCLOPHOSPHAMIDE
     Dosage: UNK
     Route: 065
  7. CICLOSPORIN [Suspect]
     Active Substance: CYCLOSPORINE
     Dosage: UNK, 6 CYCLICAL
     Route: 042

REACTIONS (11)
  - Lower respiratory tract infection [Recovered/Resolved]
  - Condition aggravated [Recovered/Resolved]
  - Pneumocystis jirovecii infection [Recovered/Resolved]
  - Respiratory failure [Recovered/Resolved]
  - Hypogammaglobulinaemia [Unknown]
  - Steroid diabetes [Unknown]
  - Viral infection [Recovered/Resolved]
  - Lymphopenia [Unknown]
  - Off label use [Unknown]
  - Weight increased [Recovered/Resolved]
  - Bacterial disease carrier [Recovered/Resolved]
